FAERS Safety Report 13055364 (Version 2)
Quarter: 2017Q1

REPORT INFORMATION
  Report Type: Spontaneous
  Country: US (occurrence: US)
  Receive Date: 20161222
  Receipt Date: 20170313
  Transmission Date: 20170428
  Serious: Yes (Death, Hospitalization, Other)
  Sender: FDA-Public Use
  Company Number: US-PFIZER INC-2016588011

PATIENT
  Age: 20 Year
  Sex: Male

DRUGS (4)
  1. DEXTROMETHORPHAN HYDROBROMIDE. [Suspect]
     Active Substance: DEXTROMETHORPHAN HYDROBROMIDE
     Indication: EUPHORIC MOOD
     Dosage: UNK
  2. OXYCODONE [Suspect]
     Active Substance: OXYCODONE
     Indication: EUPHORIC MOOD
     Dosage: UNK
  3. ROBITUSSIN DM [Suspect]
     Active Substance: DEXTROMETHORPHAN HYDROBROMIDE\GUAIFENESIN
     Indication: EUPHORIC MOOD
     Dosage: UNK
  4. HEROIN [Suspect]
     Active Substance: DIACETYLMORPHINE
     Indication: EUPHORIC MOOD
     Dosage: UNK

REACTIONS (4)
  - Drug abuse [Fatal]
  - Drug dependence [Unknown]
  - Accidental overdose [Fatal]
  - Coma [Unknown]

NARRATIVE: CASE EVENT DATE: 20160319
